FAERS Safety Report 5041423-X (Version None)
Quarter: 2006Q2

REPORT INFORMATION
  Report Type: 
  Country: None (occurrence: None)
  Receive Date: 20060601
  Receipt Date: 20060221
  Transmission Date: 20061013
  Serious: No
  Sender: FDA-Public Use
  Company Number: 2006PV009057

PATIENT
  Age: 64 Year
  Sex: Female
  Weight: 74.8435 kg

DRUGS (4)
  1. BYETTA [Suspect]
     Indication: DIABETES MELLITUS NON-INSULIN-DEPENDENT
     Dosage: 5 MCG; BID; SC
     Route: 058
     Dates: start: 20060217
  2. GLYBURIDE [Concomitant]
  3. AVANDIA [Concomitant]
  4. DIOVAN [Concomitant]

REACTIONS (9)
  - ASTHENIA [None]
  - DECREASED APPETITE [None]
  - DRUG EFFECT DECREASED [None]
  - FATIGUE [None]
  - FEELING COLD [None]
  - FLUID INTAKE REDUCED [None]
  - HYPERSOMNIA [None]
  - NAUSEA [None]
  - VOMITING [None]
